FAERS Safety Report 7235705-0 (Version None)
Quarter: 2011Q1

REPORT INFORMATION
  Report Type: 
  Country: None (occurrence: None)
  Receive Date: 20110120
  Receipt Date: 20101210
  Transmission Date: 20110831
  Serious: Yes (Hospitalization, Other)
  Sender: FDA-Public Use
  Company Number: PHHY2010US40235

PATIENT
  Sex: Male
  Weight: 89.1 kg

DRUGS (6)
  1. VITAMIN D [Concomitant]
     Dosage: 1000 MG, QD
     Route: 048
     Dates: start: 20100413
  2. REVLIMID [Concomitant]
     Dosage: 5 MG, QD
     Route: 048
     Dates: start: 20101022
  3. EXJADE [Suspect]
     Indication: MYELODYSPLASTIC SYNDROME
     Dosage: 1000 MG, QD
     Route: 048
     Dates: start: 20100611
  4. BLOOD CELLS, PACKED HUMAN [Concomitant]
  5. CYMBALTA [Concomitant]
     Dosage: 60 MG, QD
     Dates: start: 20101022
  6. METHYLPHENIDATE [Concomitant]
     Dosage: 25 MG, QD
     Route: 048
     Dates: start: 20101022

REACTIONS (6)
  - VISION BLURRED [None]
  - DIARRHOEA [None]
  - NAUSEA [None]
  - HYPERMETROPIA [None]
  - FEBRILE NEUTROPENIA [None]
  - VISUAL IMPAIRMENT [None]
